FAERS Safety Report 22146756 (Version 1)
Quarter: 2023Q1

REPORT INFORMATION
  Report Type: Spontaneous
  Country: MX (occurrence: MX)
  Receive Date: 20230328
  Receipt Date: 20230328
  Transmission Date: 20230418
  Serious: Yes (Other)
  Sender: FDA-Public Use
  Company Number: MX-PFIZER INC-PV202300057083

PATIENT
  Age: 61 Year
  Sex: Female

DRUGS (1)
  1. PAXLOVID [Suspect]
     Active Substance: NIRMATRELVIR\RITONAVIR
     Indication: COVID-19 treatment
     Dosage: UNK
     Dates: start: 20230324

REACTIONS (9)
  - Blepharitis [Unknown]
  - Nasal inflammation [Unknown]
  - Erythema [Unknown]
  - Nasal pruritus [Unknown]
  - Nasal dryness [Unknown]
  - Nasal oedema [Unknown]
  - Swelling of eyelid [Unknown]
  - Swelling face [Unknown]
  - Rash [Unknown]
